FAERS Safety Report 4681536-5 (Version None)
Quarter: 2005Q2

REPORT INFORMATION
  Report Type: 
  Country: None (occurrence: None)
  Receive Date: 20050603
  Receipt Date: 20050314
  Transmission Date: 20051028
  Serious: Yes (Life-Threatening, Hospitalization, Other)
  Sender: FDA-Public Use
  Company Number: ES-ABBOTT-05P-144-0294058-00

PATIENT
  Sex: Female

DRUGS (1)
  1. HUMIRA [Suspect]
     Indication: RHEUMATOID ARTHRITIS
     Route: 058
     Dates: start: 20030705, end: 20050201

REACTIONS (6)
  - CARDIAC TAMPONADE [None]
  - CARDIOGENIC SHOCK [None]
  - PERICARDIAL EFFUSION [None]
  - PERICARDITIS [None]
  - STAPHYLOCOCCAL INFECTION [None]
  - TACHYARRHYTHMIA [None]
